FAERS Safety Report 25521872 (Version 1)
Quarter: 2025Q3

REPORT INFORMATION
  Report Type: Report from Study
  Country: US (occurrence: US)
  Receive Date: 20250706
  Receipt Date: 20250706
  Transmission Date: 20251020
  Serious: Yes (Other)
  Sender: ABBVIE
  Company Number: US-ABBVIE-6352330

PATIENT
  Age: 49 Year
  Sex: Female

DRUGS (1)
  1. HUMIRA [Suspect]
     Active Substance: ADALIMUMAB
     Indication: Hidradenitis
     Dosage: CITRATE FREE?SOLUTION FOR INJECTION IN PRE-FILLED PEN
     Route: 058
     Dates: start: 20210505

REACTIONS (13)
  - Blindness unilateral [Unknown]
  - Typical aura without headache [Unknown]
  - Headache [Unknown]
  - Oral herpes [Unknown]
  - Gastrooesophageal reflux disease [Unknown]
  - Menopause [Unknown]
  - Wrong technique in device usage process [Unknown]
  - Dizziness [Recovered/Resolved]
  - Sinus congestion [Recovered/Resolved]
  - Nausea [Unknown]
  - Cold sweat [Unknown]
  - Fatigue [Recovering/Resolving]
  - Vision blurred [Unknown]

NARRATIVE: CASE EVENT DATE: 20210101
